FAERS Safety Report 7959059-7 (Version None)
Quarter: 2011Q4

REPORT INFORMATION
  Report Type: 
  Country: None (occurrence: None)
  Receive Date: 20111206
  Receipt Date: 20110902
  Transmission Date: 20120403
  Serious: No
  Sender: FDA-Public Use
  Company Number: US-GLAXOSMITHKLINE-A0943351A

PATIENT
  Age: 22 Year
  Sex: Female

DRUGS (3)
  1. FIORICET [Concomitant]
  2. FIORINAL [Concomitant]
  3. LAMICTAL [Suspect]
     Indication: BIPOLAR DISORDER
     Dosage: 200MG AT NIGHT
     Route: 048

REACTIONS (2)
  - BARBITURATES POSITIVE [None]
  - PRODUCT QUALITY ISSUE [None]
